FAERS Safety Report 12574250 (Version 2)
Quarter: 2016Q3

REPORT INFORMATION
  Report Type: Spontaneous
  Country: US (occurrence: US)
  Receive Date: 20160720
  Receipt Date: 20160825
  Transmission Date: 20161109
  Serious: Yes (Other)
  Sender: FDA-Public Use
  Company Number: US-TEVA-671433USA

PATIENT
  Age: 40 Year
  Sex: Female

DRUGS (4)
  1. ZECUITY [Suspect]
     Active Substance: SUMATRIPTAN SUCCINATE
     Indication: HEADACHE
     Route: 062
     Dates: start: 20160216
  2. DAILY MULTIVITAMIN FOR WOMEN [Concomitant]
  3. MAGNESIUM [Concomitant]
     Active Substance: MAGNESIUM
  4. VITAMIN D [Concomitant]
     Active Substance: CHOLECALCIFEROL

REACTIONS (16)
  - Application site paraesthesia [Recovered/Resolved]
  - Application site scab [Recovered/Resolved]
  - Application site irritation [Recovered/Resolved]
  - Application site papules [Recovered/Resolved]
  - Product adhesion issue [Unknown]
  - Application site burn [Recovered/Resolved]
  - Application site erythema [Recovered/Resolved]
  - Application site exfoliation [Recovered/Resolved]
  - Application site pruritus [Recovered/Resolved]
  - Application site discomfort [Recovered/Resolved]
  - Application site urticaria [Recovered/Resolved]
  - Application site warmth [Recovered/Resolved]
  - Application site discolouration [Recovered/Resolved]
  - Application site pain [Recovered/Resolved]
  - Application site erosion [Recovered/Resolved]
  - Drug ineffective [Unknown]

NARRATIVE: CASE EVENT DATE: 20160216
